FAERS Safety Report 9444811 (Version 1)
Quarter: 2013Q3

REPORT INFORMATION
  Report Type: Report from Study
  Country: AR (occurrence: AR)
  Receive Date: 20130807
  Receipt Date: 20130807
  Transmission Date: 20140515
  Serious: Yes (Other)
  Sender: FDA-Public Use
  Company Number: PHHY2013AR084904

PATIENT
  Sex: Male

DRUGS (1)
  1. DIOVAN D [Suspect]
     Dosage: 1 DF (VAL 320 MG, HCTZ UNK), DAILY

REACTIONS (1)
  - Cataract [Unknown]
